FAERS Safety Report 13172900 (Version 1)
Quarter: 2017Q1

REPORT INFORMATION
  Report Type: Spontaneous
  Country: US (occurrence: US)
  Receive Date: 20170131
  Receipt Date: 20170131
  Transmission Date: 20170428
  Serious: No
  Sender: FDA-Public Use
  Company Number: US-ABBVIE-16K-163-1643420-00

PATIENT
  Age: 35 Year
  Sex: Male
  Weight: 71.73 kg

DRUGS (5)
  1. LANSOPRAZOLE. [Concomitant]
     Active Substance: LANSOPRAZOLE
     Indication: PRODUCT USED FOR UNKNOWN INDICATION
  2. NORVASC [Concomitant]
     Active Substance: AMLODIPINE BESYLATE
     Indication: PRODUCT USED FOR UNKNOWN INDICATION
  3. IBUPROFEN. [Concomitant]
     Active Substance: IBUPROFEN
     Indication: PRODUCT USED FOR UNKNOWN INDICATION
  4. LIALDA [Concomitant]
     Active Substance: MESALAMINE
     Indication: PRODUCT USED FOR UNKNOWN INDICATION
  5. HUMIRA [Suspect]
     Active Substance: ADALIMUMAB
     Indication: COLITIS ULCERATIVE
     Route: 058
     Dates: start: 201401, end: 201606

REACTIONS (16)
  - Cough [Not Recovered/Not Resolved]
  - Red blood cell sedimentation rate increased [Unknown]
  - Mean platelet volume decreased [Unknown]
  - Erythema [Not Recovered/Not Resolved]
  - Haemoglobin decreased [Unknown]
  - Pyrexia [Not Recovered/Not Resolved]
  - Chest discomfort [Not Recovered/Not Resolved]
  - Dry throat [Not Recovered/Not Resolved]
  - Antinuclear antibody positive [Unknown]
  - Arthralgia [Not Recovered/Not Resolved]
  - Globulins increased [Unknown]
  - Monocyte count decreased [Unknown]
  - Tachycardia [Not Recovered/Not Resolved]
  - Skin mass [Not Recovered/Not Resolved]
  - Oropharyngeal pain [Not Recovered/Not Resolved]
  - Dyspnoea [Not Recovered/Not Resolved]

NARRATIVE: CASE EVENT DATE: 201506
